FAERS Safety Report 6828255-4 (Version None)
Quarter: 2010Q3

REPORT INFORMATION
  Report Type: 
  Country: None (occurrence: None)
  Receive Date: 20100709
  Receipt Date: 20070202
  Transmission Date: 20110219
  Serious: No
  Sender: FDA-Public Use
  Company Number: US-PFIZER INC-2007009879

PATIENT
  Sex: Female
  Weight: 51.71 kg

DRUGS (7)
  1. CHANTIX [Suspect]
     Indication: SMOKING CESSATION THERAPY
     Dates: start: 20070127
  2. PLAVIX [Concomitant]
  3. IMDUR [Concomitant]
  4. ZOLOFT [Concomitant]
  5. EVISTA [Concomitant]
  6. ACETYLSALICYLIC ACID [Concomitant]
  7. VITAMINS [Concomitant]

REACTIONS (3)
  - ABNORMAL DREAMS [None]
  - FEELING OF RELAXATION [None]
  - NAUSEA [None]
